FAERS Safety Report 5832745-0 (Version None)
Quarter: 2008Q3

REPORT INFORMATION
  Report Type: 
  Country: None (occurrence: None)
  Receive Date: 20080804
  Receipt Date: 20080729
  Transmission Date: 20090109
  Serious: Yes (Other)
  Sender: FDA-Public Use
  Company Number: PHHY2008JP11856

PATIENT
  Age: 30 Year
  Sex: Male

DRUGS (3)
  1. CYCLOSPORINE [Suspect]
     Indication: HEART TRANSPLANT
     Route: 065
  2. CERTICAN [Concomitant]
     Indication: HEART TRANSPLANT
     Route: 048
  3. MYCOPHENOLATE MOFETIL [Concomitant]
     Indication: HEART TRANSPLANT
     Dosage: UNK

REACTIONS (4)
  - BLOOD CREATININE INCREASED [None]
  - COMPLICATIONS OF TRANSPLANTED HEART [None]
  - CORONARY ARTERY DISEASE [None]
  - RENAL IMPAIRMENT [None]
